FAERS Safety Report 10655697 (Version 1)
Quarter: 2014Q4

REPORT INFORMATION
  Report Type: Spontaneous
  Country: JP (occurrence: JP)
  Receive Date: 20141216
  Receipt Date: 20141216
  Transmission Date: 20150529
  Serious: Yes (Other)
  Sender: FDA-Public Use
  Company Number: JP-BAYER-2014-183433

PATIENT
  Age: 79 Year
  Sex: Male

DRUGS (2)
  1. BAYASPIRIN [Suspect]
     Active Substance: ASPIRIN
     Dosage: UNK
     Route: 048
  2. PLAVIX [Concomitant]
     Active Substance: CLOPIDOGREL BISULFATE
     Dosage: UNK
     Route: 048

REACTIONS (6)
  - Anaemia [None]
  - Malaise [None]
  - Small intestinal haemorrhage [Recovered/Resolved]
  - Faeces discoloured [None]
  - Dizziness postural [None]
  - Duodenal vascular ectasia [None]

NARRATIVE: CASE EVENT DATE: 20140609
